FAERS Safety Report 8348936-3 (Version None)
Quarter: 2012Q2

REPORT INFORMATION
  Report Type: 
  Country: None (occurrence: None)
  Receive Date: 20120508
  Receipt Date: 20120423
  Transmission Date: 20120825
  Serious: Yes (Other)
  Sender: FDA-Public Use
  Company Number: 2012MA005299

PATIENT
  Age: 37 Year
  Sex: Female

DRUGS (4)
  1. PACLITAXEL [Suspect]
     Indication: BREAST CANCER
  2. DOXORUBICIN HCL [Suspect]
     Indication: BREAST CANCER
  3. CYCLOPHOSPHAMIDE [Suspect]
     Indication: BREAST CANCER
  4. CAPECITABINE [Suspect]
     Indication: BREAST CANCER

REACTIONS (1)
  - ACUTE MYELOID LEUKAEMIA [None]
